FAERS Safety Report 9150641 (Version 2)
Quarter: 2013Q1

REPORT INFORMATION
  Report Type: Spontaneous
  Country: US (occurrence: None)
  Receive Date: 20130131
  Receipt Date: 20130227
  Transmission Date: 20140127
  Serious: Yes (Hospitalization)
  Sender: FDA-Public Use
  Company Number: 2013-0020

PATIENT
  Age: 65 Year
  Sex: Female

DRUGS (6)
  1. KYPROLIS [Suspect]
     Indication: PLASMA CELL MYELOMA
     Route: 042
     Dates: start: 201210
  2. ACYCLOVIR (ACICLOVIR) (ACICLOVIR) [Concomitant]
  3. FIORINAL (ACETYLSALICYLIC ACID) (ACETYLSALICYLIC ACID) [Concomitant]
  4. DEXAMETHASONE (DEXAMETHASONE) (DEXAMETHASONE) [Concomitant]
  5. VASOTEC (ENALAPRIL MALEATE) (ENALAPRIL MALEATE) [Concomitant]
  6. ZOMETA (ZOLEDRONIC ACID) (ZOLEDRONIC ACID) [Concomitant]

REACTIONS (15)
  - Pyrexia [None]
  - Cough [None]
  - Cystitis [None]
  - Wheezing [None]
  - Chest discomfort [None]
  - Atelectasis [None]
  - Malaise [None]
  - Fatigue [None]
  - Dyspnoea [None]
  - Influenza [None]
  - Pain [None]
  - Hypertension [None]
  - Pneumonia viral [None]
  - Phlebitis [None]
  - Neuropathy peripheral [None]
